FAERS Safety Report 5486960-9 (Version None)
Quarter: 2007Q3

REPORT INFORMATION
  Report Type: 
  Country: None (occurrence: None)
  Receive Date: 20070925
  Receipt Date: 20070706
  Transmission Date: 20080115
  Serious: No
  Sender: FDA-Public Use
  Company Number: 2007US001235

PATIENT
  Sex: Female

DRUGS (5)
  1. VESICARE [Suspect]
     Indication: HYPERTONIC BLADDER
     Dosage: 5 MG, ORAL
     Route: 048
  2. ATENOLOL [Concomitant]
  3. FLURAZEPAM [Concomitant]
  4. OXYBUTYNIN CHLORIDE [Concomitant]
  5. HYDROCODONE BITARTRATE [Concomitant]

REACTIONS (3)
  - ALOPECIA [None]
  - PRURITUS [None]
  - RASH [None]
